FAERS Safety Report 7415514 (Version 4)
Quarter: 2025Q1

REPORT INFORMATION
  Report Type: Spontaneous
  Country: PT (occurrence: PT)
  Receive Date: 20100610
  Receipt Date: 20250102
  Transmission Date: 20250409
  Serious: Yes (Death, Life-Threatening, Hospitalization, Other)
  Sender: Atnahs Healthcare
  Company Number: PT-ROCHE-632258

PATIENT
  Age: 57 Year
  Sex: Female
  Weight: 56 kg

DRUGS (17)
  1. DIAZEPAM [Suspect]
     Active Substance: DIAZEPAM
     Indication: Depression
     Route: 065
  2. DIAZEPAM [Suspect]
     Active Substance: DIAZEPAM
  3. ATENOLOL [Suspect]
     Active Substance: ATENOLOL
     Indication: Supraventricular extrasystoles
     Route: 065
     Dates: start: 200709, end: 20090316
  4. ESTAZOLAM [Suspect]
     Active Substance: ESTAZOLAM
     Indication: Depression
     Route: 065
  5. ESTAZOLAM [Suspect]
     Active Substance: ESTAZOLAM
  6. TIANEPTINE [Suspect]
     Active Substance: TIANEPTINE
     Indication: Depression
     Route: 065
  7. TIANEPTINE [Suspect]
     Active Substance: TIANEPTINE
  8. HERCEPTIN [Suspect]
     Active Substance: TRASTUZUMAB
     Indication: Breast cancer
     Dates: start: 20081008, end: 20090309
  9. HERCEPTIN [Suspect]
     Active Substance: TRASTUZUMAB
  10. DOXORUBICIN [Suspect]
     Active Substance: DOXORUBICIN
     Indication: Breast cancer
     Route: 042
     Dates: start: 200804, end: 200807
  11. DOXORUBICIN [Suspect]
     Active Substance: DOXORUBICIN
  12. TAMOXIFEN [Suspect]
     Active Substance: TAMOXIFEN
     Indication: Invasive ductal breast carcinoma
     Route: 048
     Dates: start: 20080918, end: 20090323
  13. PERINDOPRIL ARGININE [Suspect]
     Active Substance: PERINDOPRIL ARGININE
     Indication: Ejection fraction decreased
     Dosage: 5 MILLIGRAM, 1X/DAY
     Route: 048
     Dates: start: 20090316, end: 20090323
  14. TRASTUZUMAB [Suspect]
     Active Substance: TRASTUZUMAB
     Indication: Invasive ductal breast carcinoma
     Dates: start: 200810, end: 20090309
  15. CYCLOPHOSPHAMIDE [Concomitant]
     Active Substance: CYCLOPHOSPHAMIDE
     Indication: Breast cancer
     Route: 042
     Dates: start: 200804, end: 200807
  16. CYCLOPHOSPHAMIDE [Concomitant]
     Active Substance: CYCLOPHOSPHAMIDE
     Route: 042
     Dates: start: 200804, end: 200807
  17. DOCETAXEL [Concomitant]
     Active Substance: DOCETAXEL
     Indication: Breast cancer
     Route: 042
     Dates: start: 200804, end: 200807

REACTIONS (5)
  - Sudden cardiac death [Fatal]
  - Left atrial enlargement [Fatal]
  - Ejection fraction decreased [Fatal]
  - Arrhythmia [Fatal]
  - Depression [Unknown]

NARRATIVE: CASE EVENT DATE: 20090101
